FAERS Safety Report 7441115-3 (Version None)
Quarter: 2011Q2

REPORT INFORMATION
  Report Type: 
  Country: None (occurrence: None)
  Receive Date: 20110427
  Receipt Date: 20110414
  Transmission Date: 20111010
  Serious: Yes (Other)
  Sender: FDA-Public Use
  Company Number: GB-MYLANLABS-2011S1007844

PATIENT

DRUGS (1)
  1. LAMOTRIGINE [Suspect]
     Indication: CONVULSION

REACTIONS (1)
  - ORAL HAIRY LEUKOPLAKIA [None]
